FAERS Safety Report 8979249 (Version 1)
Quarter: 2012Q4

REPORT INFORMATION
  Report Type: 
  Country: DE (occurrence: DE)
  Receive Date: 20121221
  Receipt Date: 20121221
  Transmission Date: 20130627
  Serious: Yes (Other)
  Sender: FDA-Public Use
  Company Number: DE-FRI-1000041214

PATIENT
  Age: 69 Year
  Sex: Male
  Weight: 115 kg

DRUGS (2)
  1. ROFLUMILAST [Suspect]
     Dosage: 1 DF
     Route: 048
     Dates: start: 201008, end: 2012
  2. ROFLUMILAST [Suspect]
     Dosage: 1DF QOD
     Route: 048
     Dates: start: 2012, end: 201210

REACTIONS (7)
  - Panic attack [Unknown]
  - Hyperhidrosis [Unknown]
  - Insomnia [Unknown]
  - Restlessness [Unknown]
  - Headache [Unknown]
  - Malaise [Unknown]
  - Drug dose omission [Unknown]
